FAERS Safety Report 7805358-9 (Version None)
Quarter: 2011Q4

REPORT INFORMATION
  Report Type: 
  Country: None (occurrence: None)
  Receive Date: 20111010
  Receipt Date: 20110928
  Transmission Date: 20120403
  Serious: Yes (Hospitalization)
  Sender: FDA-Public Use
  Company Number: AU-PFIZER INC-2011019898

PATIENT
  Age: 66 Year
  Sex: Male
  Weight: 63.35 kg

DRUGS (26)
  1. GRANISETRON [Concomitant]
     Dosage: 1 MG, UNK
     Route: 042
     Dates: start: 20110118
  2. PETHIDINE [Concomitant]
     Indication: CHILLS
     Dosage: 50 MG, UNK
     Route: 042
     Dates: start: 20110125
  3. APREPITANT [Concomitant]
     Dosage: 125 MG, UNK
     Route: 048
     Dates: start: 20110118
  4. MANNITOL [Concomitant]
     Dosage: 200 ML, UNK
     Dates: start: 20110118
  5. RANITIDINE [Concomitant]
     Dosage: 50 MG, UNK
     Route: 042
  6. CISPLATIN [Suspect]
     Indication: MESOTHELIOMA
     Dosage: 140 MG, CYCLIC, DAY 1 OF CYCLE 1,2 AND 3
     Dates: start: 20101130
  7. CP-870,893 [Suspect]
     Dosage: 12.6 MG, CYCLIC, ON DAY 8 OF CYCLE 2 AND 3
     Route: 042
     Dates: start: 20101229
  8. PEMETREXED [Suspect]
     Indication: MESOTHELIOMA
     Dosage: 930 MG, CYCLIC, DAY 1 OF CYCLE 1,2 AND 3
     Dates: start: 20101130
  9. PREGABALIN [Suspect]
     Indication: ANALGESIC THERAPY
     Dosage: 75 MG, 3X/DAY
     Route: 048
     Dates: start: 20101214
  10. NEXIUM [Concomitant]
     Indication: GASTROOESOPHAGEAL REFLUX DISEASE
     Dosage: UNK
     Route: 048
     Dates: start: 20050101
  11. ACTILAX [Concomitant]
     Indication: CONSTIPATION
     Dosage: UNK
     Route: 048
     Dates: start: 20110101
  12. SODIUM CHLORIDE [Concomitant]
     Dosage: 1000 ML, PRE-CISPLATIN
     Dates: start: 20110118, end: 20110118
  13. FOLIC ACID [Concomitant]
     Indication: PROPHYLAXIS
     Dosage: UNK
     Route: 048
     Dates: start: 20101116
  14. FENTANYL [Concomitant]
     Indication: ANALGESIC THERAPY
     Dosage: UNK
     Route: 062
     Dates: start: 20101214
  15. METOCLOPRAMIDE [Concomitant]
     Dosage: 10 MG, UNK
     Route: 048
     Dates: start: 20110125
  16. SODIUM CHLORIDE [Concomitant]
     Dosage: 1000 ML, POST-CISPLATIN
     Dates: start: 20110118, end: 20110118
  17. LORATADINE [Concomitant]
     Dosage: 10 MG, UNK
     Route: 048
     Dates: start: 20110125
  18. PARACETAMOL [Concomitant]
     Dosage: 1 G, UNK
     Route: 048
     Dates: start: 20110125
  19. CP-870,893 [Suspect]
     Indication: MESOTHELIOMA
     Dosage: 13 MG, ONCE, DAY 8 OF CYCLE 1
     Route: 042
     Dates: start: 20101207, end: 20101207
  20. VITAMIN B-12 [Concomitant]
     Indication: PROPHYLAXIS
     Dosage: UNK
     Route: 030
     Dates: start: 20101116
  21. ACETAMINOPHEN [Concomitant]
     Indication: ANALGESIC THERAPY
     Dosage: UNK
     Route: 048
     Dates: start: 20100101
  22. HORSE-RADISH [Concomitant]
     Indication: PROPHYLAXIS
     Dosage: UNK
     Route: 048
     Dates: start: 20060101
  23. METOCLOPRAMIDE [Concomitant]
     Indication: NAUSEA
     Dosage: UNK
     Route: 048
     Dates: start: 20110101
  24. COLOXYL [Concomitant]
     Indication: CONSTIPATION
     Dosage: UNK
     Route: 048
     Dates: start: 20101101
  25. DEXAMETHASONE [Concomitant]
     Dosage: 20 MG, UNK
     Route: 042
     Dates: start: 20110118
  26. MORPHINE [Concomitant]
     Indication: ANALGESIC THERAPY
     Dosage: UNK
     Route: 048
     Dates: start: 20101214

REACTIONS (3)
  - CONFUSIONAL STATE [None]
  - HYPONATRAEMIA [None]
  - PYREXIA [None]
